FAERS Safety Report 10878503 (Version 1)
Quarter: 2015Q1

REPORT INFORMATION
  Report Type: Report from Study
  Country: US (occurrence: US)
  Receive Date: 20150302
  Receipt Date: 20150302
  Transmission Date: 20150721
  Serious: No
  Sender: FDA-Public Use
  Company Number: US-ABBVIE-14P-163-1214026-00

PATIENT
  Age: 64 Year
  Sex: Male

DRUGS (2)
  1. ANDROGEL [Suspect]
     Active Substance: TESTOSTERONE
     Indication: PRODUCT USED FOR UNKNOWN INDICATION
     Dosage: 7 PUMPS/DAY ; 10 YEARS AGO
     Route: 061
     Dates: start: 2004, end: 2012
  2. TESTIM [Suspect]
     Active Substance: TESTOSTERONE
     Indication: PRODUCT USED FOR UNKNOWN INDICATION
     Dosage: 1 1/2 TUBES
     Dates: start: 2012, end: 2014

REACTIONS (3)
  - Drug effect incomplete [Unknown]
  - Hair growth abnormal [Not Recovered/Not Resolved]
  - Prostatomegaly [Unknown]
